FAERS Safety Report 6262198-2 (Version None)
Quarter: 2009Q3

REPORT INFORMATION
  Report Type: 
  Country: None (occurrence: None)
  Receive Date: 20090709
  Receipt Date: 20090630
  Transmission Date: 20100115
  Serious: Yes (Hospitalization, Disabling, Other)
  Sender: FDA-Public Use
  Company Number: US-MERCK-0811USA02080

PATIENT
  Age: 56 Year
  Sex: Female
  Weight: 54 kg

DRUGS (2)
  1. FOSAMAX [Suspect]
     Indication: OSTEOPOROSIS
     Route: 048
     Dates: start: 19990101, end: 20060109
  2. HORMONES (UNSPECIFIED) [Concomitant]
     Route: 065
     Dates: start: 19890101, end: 20080201

REACTIONS (16)
  - ADVERSE DRUG REACTION [None]
  - BRONCHITIS [None]
  - DIARRHOEA [None]
  - FISTULA [None]
  - HYPERTENSION [None]
  - IMPAIRED HEALING [None]
  - JAW DISORDER [None]
  - NAUSEA [None]
  - OSTEOMYELITIS [None]
  - OSTEONECROSIS [None]
  - POSTOPERATIVE FEVER [None]
  - SMEAR CERVIX ABNORMAL [None]
  - SOFT TISSUE INFECTION [None]
  - TOOTH ABSCESS [None]
  - UTERINE DISORDER [None]
  - VULVOVAGINAL PRURITUS [None]
